FAERS Safety Report 14112071 (Version 1)
Quarter: 2017Q4

REPORT INFORMATION
  Report Type: Report from Study
  Country: KR (occurrence: KR)
  Receive Date: 20171020
  Receipt Date: 20171020
  Transmission Date: 20180321
  Serious: Yes (Hospitalization)
  Sender: FDA-Public Use
  Company Number: KR-TAKEDA-2017TUS021914

PATIENT
  Age: 76 Year
  Sex: Female
  Weight: 51 kg

DRUGS (11)
  1. ALPRAZOLAM. [Concomitant]
     Active Substance: ALPRAZOLAM
     Indication: MAJOR DEPRESSION
     Dosage: 0.5 MG, UNK
     Route: 048
     Dates: start: 20170616, end: 20170623
  2. BEECOM HEXA [Concomitant]
     Indication: VITAMIN SUPPLEMENTATION
     Dosage: 2 ML, UNK
     Route: 042
     Dates: start: 20170616, end: 20170616
  3. ASCORBIC ACID. [Concomitant]
     Active Substance: ASCORBIC ACID
     Indication: VITAMIN SUPPLEMENTATION
     Dosage: 2 ML, UNK
     Route: 042
     Dates: start: 20170616, end: 20170616
  4. BRINTELLIX [Suspect]
     Active Substance: VORTIOXETINE HYDROBROMIDE
     Indication: DEPRESSION
     Dosage: 5 MG, QD
     Route: 048
     Dates: start: 20170523, end: 20170623
  5. BUSPIRONE HCL [Concomitant]
     Active Substance: BUSPIRONE HYDROCHLORIDE
     Indication: MAJOR DEPRESSION
     Dosage: 0.75 MG, UNK
     Route: 048
     Dates: start: 20170523, end: 20170614
  6. ETIZOLAM [Concomitant]
     Active Substance: ETIZOLAM
     Indication: MAJOR DEPRESSION
     Dosage: 1 MG, UNK
     Route: 048
     Dates: start: 20170530
  7. NORMAL SALINE 0.9% [Concomitant]
     Indication: VITAMIN SUPPLEMENTATION
     Dosage: 100 ML, UNK
     Route: 042
     Dates: start: 20170616, end: 20170616
  8. AMITRIPTYLINE HCL [Concomitant]
     Active Substance: AMITRIPTYLINE
     Indication: MAJOR DEPRESSION
     Dosage: 10 MG, UNK
     Route: 048
     Dates: start: 20170621
  9. DOMPERIDONE [Concomitant]
     Active Substance: DOMPERIDONE
     Indication: DYSPEPSIA
     Dosage: 10 MG, UNK
     Route: 048
     Dates: start: 20170616, end: 20170623
  10. AMITRIPTYLINE HCL [Concomitant]
     Active Substance: AMITRIPTYLINE
     Dosage: 5 MG, UNK
     Route: 048
     Dates: start: 20170602
  11. PROPRANOLOL HYDROCHLORIDE. [Concomitant]
     Active Substance: PROPRANOLOL HYDROCHLORIDE
     Indication: MAJOR DEPRESSION
     Dosage: 60 MG, UNK
     Route: 048
     Dates: start: 20170602, end: 20170623

REACTIONS (1)
  - Tremor [Recovered/Resolved]

NARRATIVE: CASE EVENT DATE: 20170619
